FAERS Safety Report 25202104 (Version 1)
Quarter: 2025Q2

REPORT INFORMATION
  Report Type: Spontaneous
  Country: US (occurrence: US)
  Receive Date: 20250416
  Receipt Date: 20250416
  Transmission Date: 20250716
  Serious: No
  Sender: SUNOVION
  Company Number: US-SMPA-2025SPA003372AA

PATIENT

DRUGS (2)
  1. GEMTESA [Suspect]
     Active Substance: VIBEGRON
     Route: 048
  2. TROSPIUM [Concomitant]
     Active Substance: TROSPIUM
     Route: 065

REACTIONS (1)
  - Urinary retention [Unknown]
